FAERS Safety Report 7946679-9 (Version None)
Quarter: 2011Q4

REPORT INFORMATION
  Report Type: 
  Country: None (occurrence: None)
  Receive Date: 20111129
  Receipt Date: 20111121
  Transmission Date: 20120403
  Serious: Yes (Other)
  Sender: FDA-Public Use
  Company Number: CHPA2011US016231

PATIENT
  Age: 25 Year
  Sex: Male
  Weight: 102.4 kg

DRUGS (3)
  1. EXCEDRIN (MIGRAINE) [Suspect]
     Indication: MIGRAINE
     Dosage: UNK, UNK
     Route: 048
     Dates: end: 20110101
  2. ADVIL LIQUI-GELS [Suspect]
     Indication: HEADACHE
     Dosage: 200 MG, PRN, 3-4 TIMES A WEEK
     Route: 048
     Dates: start: 20110101
  3. ACETAMINOPHEN [Suspect]
     Indication: HEADACHE
     Dosage: UNK, UNK
     Route: 048
     Dates: end: 20110101

REACTIONS (7)
  - NERVOUSNESS [None]
  - ASTHENIA [None]
  - PAIN IN EXTREMITY [None]
  - INFLAMMATION [None]
  - FATIGUE [None]
  - RECTAL HAEMORRHAGE [None]
  - MALAISE [None]
